FAERS Safety Report 10886059 (Version 2)
Quarter: 2015Q1

REPORT INFORMATION
  Report Type: Spontaneous
  Country: US (occurrence: None)
  Receive Date: 20150302
  Receipt Date: 20150320
  Transmission Date: 20150721
  Serious: Yes (Hospitalization, Other)
  Sender: FDA-Public Use
  Company Number: 2015SCAL000065

PATIENT
  Age: 41 Year
  Sex: Male

DRUGS (3)
  1. DESVENLAFAXINE. [Suspect]
     Active Substance: DESVENLAFAXINE
     Indication: PRODUCT USED FOR UNKNOWN INDICATION
  2. RISPERIDONE. [Concomitant]
     Active Substance: RISPERIDONE
  3. METHYLENEDIOXYMETHAMPHETAMINE [Suspect]
     Active Substance: METHYLENEDIOXYMETHAMPHETAMINE
     Indication: PRODUCT USED FOR UNKNOWN INDICATION

REACTIONS (7)
  - Blood sodium decreased [None]
  - Acute kidney injury [None]
  - Serotonin syndrome [None]
  - Drug interaction [None]
  - Rhabdomyolysis [None]
  - Aggression [None]
  - Haemodialysis [None]
